FAERS Safety Report 5815635-9 (Version None)
Quarter: 2008Q3

REPORT INFORMATION
  Report Type: 
  Country: None (occurrence: None)
  Receive Date: 20080716
  Receipt Date: 20080708
  Transmission Date: 20090109
  Serious: Yes (Hospitalization)
  Sender: FDA-Public Use
  Company Number: 163-21880-08031670

PATIENT
  Age: 51 Year
  Sex: Female

DRUGS (10)
  1. REVLIMID [Suspect]
     Indication: MULTIPLE MYELOMA
     Dosage: 25 MG, DAILY X21 DAYS, ORAL
     Route: 048
     Dates: start: 20080226
  2. FENTANYL [Concomitant]
  3. PROTONIX [Concomitant]
  4. DEXAMETHASONE TAB [Concomitant]
  5. ALPRAZOLAM [Concomitant]
  6. IRON (IRON) (TABLETS) [Concomitant]
  7. ASPIRIN [Concomitant]
  8. FOSAMAX [Concomitant]
  9. HYDROCODONE (HYDROCODONE) [Concomitant]
  10. FENTANYL (FENTANYL) (POULTICE OR PATCH) [Concomitant]

REACTIONS (9)
  - BACK PAIN [None]
  - BLOOD PRESSURE DECREASED [None]
  - CHOLECYSTITIS [None]
  - COLITIS [None]
  - COUGH [None]
  - NIGHT SWEATS [None]
  - OROPHARYNGEAL PAIN [None]
  - PNEUMONIA [None]
  - SENSATION OF HEAVINESS [None]
